FAERS Safety Report 23778985 (Version 2)
Quarter: 2024Q2

REPORT INFORMATION
  Report Type: Spontaneous
  Country: US (occurrence: US)
  Receive Date: 20240424
  Receipt Date: 20240426
  Transmission Date: 20240715
  Serious: Yes (Life-Threatening, Hospitalization, Other)
  Sender: FDA-Public Use
  Company Number: US-MLMSERVICE-20240412-PI025667-00175-1

PATIENT
  Age: 56 Year
  Sex: Female

DRUGS (2)
  1. HEPARIN SODIUM [Suspect]
     Active Substance: HEPARIN SODIUM
     Indication: Pulmonary embolism
     Dosage: TRANSITIONED BACK TO HEPARIN INFUSION
  2. HEPARIN SODIUM [Suspect]
     Active Substance: HEPARIN SODIUM
     Indication: Stag horn calculus
     Dosage: INFUSION

REACTIONS (2)
  - Heparin-induced thrombocytopenia [Recovering/Resolving]
  - Atrial thrombosis [Unknown]
